FAERS Safety Report 6758126-3 (Version None)
Quarter: 2010Q2

REPORT INFORMATION
  Report Type: 
  Country: None (occurrence: None)
  Receive Date: 20100607
  Receipt Date: 20100527
  Transmission Date: 20101027
  Serious: Yes (Hospitalization)
  Sender: FDA-Public Use
  Company Number: FR-ASTRAZENECA-2010SE24728

PATIENT
  Age: 24 Year
  Sex: Male

DRUGS (4)
  1. NEXIUM [Suspect]
     Route: 048
     Dates: start: 20100201, end: 20100414
  2. LEXOMIL [Suspect]
     Route: 048
     Dates: start: 20100408, end: 20100414
  3. SEROPLEX [Suspect]
     Indication: MAJOR DEPRESSION
     Route: 048
     Dates: start: 20100408
  4. ACETAMINOPHEN AND CODEINE PHOSPHATE [Suspect]
     Dosage: 500 MG AS REQUESTED
     Route: 048

REACTIONS (1)
  - CYTOLYTIC HEPATITIS [None]
